FAERS Safety Report 19055561 (Version 3)
Quarter: 2021Q2

REPORT INFORMATION
  Report Type: Spontaneous
  Country: US (occurrence: SI)
  Receive Date: 20210325
  Receipt Date: 20210422
  Transmission Date: 20210717
  Serious: Yes (Other)
  Sender: FDA-Public Use
  Company Number: US-JNJFOC-20210341587

PATIENT
  Age: 83 Year
  Sex: Female
  Weight: 63 kg

DRUGS (3)
  1. RIVAROXABAN [Suspect]
     Active Substance: RIVAROXABAN
     Dosage: XARELTO 20 MG
     Route: 048
  2. PRADAXA [Suspect]
     Active Substance: DABIGATRAN ETEXILATE MESYLATE
     Indication: PRODUCT USED FOR UNKNOWN INDICATION
     Dosage: 110 MG, BID
     Route: 065
  3. RIVAROXABAN [Suspect]
     Active Substance: RIVAROXABAN
     Indication: ATRIAL FIBRILLATION
     Dosage: 15 MG
     Route: 048
     Dates: start: 2014

REACTIONS (6)
  - Altered state of consciousness [Unknown]
  - Transient ischaemic attack [Unknown]
  - Postictal paralysis [Unknown]
  - Ruptured cerebral aneurysm [Unknown]
  - Anti factor Xa activity decreased [Unknown]
  - Partial seizures [Unknown]
